FAERS Safety Report 11637522 (Version 3)
Quarter: 2015Q4

REPORT INFORMATION
  Report Type: Spontaneous
  Country: US (occurrence: US)
  Receive Date: 20151016
  Receipt Date: 20151030
  Transmission Date: 20160304
  Serious: Yes (Other)
  Sender: FDA-Public Use
  Company Number: US-PFIZER INC-2015341689

PATIENT
  Age: 76 Year
  Sex: Female
  Weight: 84 kg

DRUGS (10)
  1. GABAPENTIN. [Suspect]
     Active Substance: GABAPENTIN
     Dosage: 900 MG (300 MG, 3 TABLETS), 3X/DAY
     Dates: end: 201508
  2. LISINOPRIL. [Concomitant]
     Active Substance: LISINOPRIL
     Dosage: 20 MG, 1X/DAY
  3. VITAMIN D [Concomitant]
     Active Substance: CHOLECALCIFEROL
     Dosage: 1000 MG, UNK
  4. METOPROLOL TARTRATE. [Concomitant]
     Active Substance: METOPROLOL TARTRATE
     Indication: HYPERTENSION
     Dosage: 50 MG, 3X/DAY
  5. OXYBUTYNIN [Concomitant]
     Active Substance: OXYBUTYNIN
     Indication: URINARY TRACT DISORDER
     Dosage: 5 MG, DAILY
  6. DIGOXIN. [Concomitant]
     Active Substance: DIGOXIN
     Indication: PERIPHERAL VASCULAR DISORDER
     Dosage: 250 MG, 1X/DAY
  7. CENTRUM FOR WOMEN [Concomitant]
     Active Substance: VITAMINS
     Dosage: UNK
  8. LYRICA [Suspect]
     Active Substance: PREGABALIN
     Indication: NEUROPATHY PERIPHERAL
     Dosage: 50 MG, DAILY
     Dates: start: 20140911, end: 201409
  9. WARFARIN SODIUM. [Concomitant]
     Active Substance: WARFARIN SODIUM
     Dosage: 2.5 MG, ALTERNATE DAY (FOUR A WEEK, EVERY OTHER DAY)
  10. METFORMIN HCL [Concomitant]
     Active Substance: METFORMIN HYDROCHLORIDE
     Indication: DIABETES MELLITUS
     Dosage: 500 MG, DAILY

REACTIONS (15)
  - Impaired driving ability [Unknown]
  - Depression [Unknown]
  - Abdominal discomfort [Unknown]
  - Pain in extremity [Unknown]
  - Sensory loss [Unknown]
  - Psychomotor hyperactivity [Unknown]
  - Limb discomfort [Unknown]
  - Gait disturbance [Unknown]
  - Peripheral coldness [Unknown]
  - Crying [Unknown]
  - Drug ineffective [Unknown]
  - Pain [Not Recovered/Not Resolved]
  - Weight decreased [Unknown]
  - Suicidal ideation [Unknown]
  - Bone pain [Not Recovered/Not Resolved]
